FAERS Safety Report 5625545-8 (Version None)
Quarter: 2008Q1

REPORT INFORMATION
  Report Type: 
  Country: None (occurrence: None)
  Receive Date: 20080211
  Receipt Date: 20080211
  Transmission Date: 20080703
  Serious: No
  Sender: FDA-Public Use
  Company Number: None

PATIENT
  Sex: Female
  Weight: 27.2158 kg

DRUGS (3)
  1. HEPARIN [Suspect]
     Indication: ANTICOAGULANT THERAPY
     Dosage: 800 U ONCE IV BOLUS
     Route: 040
     Dates: start: 20080122, end: 20080122
  2. HEPARIN [Suspect]
     Indication: APHERESIS
     Dosage: 800 U ONCE IV BOLUS
     Route: 040
     Dates: start: 20080122, end: 20080122
  3. LDL-APHESIS PRODUCTS [Concomitant]

REACTIONS (7)
  - ABDOMINAL PAIN UPPER [None]
  - CHEST PAIN [None]
  - FLUSHING [None]
  - LIP SWELLING [None]
  - PALLOR [None]
  - PHARMACEUTICAL PRODUCT COMPLAINT [None]
  - SWOLLEN TONGUE [None]
